FAERS Safety Report 7845576-7 (Version None)
Quarter: 2011Q4

REPORT INFORMATION
  Report Type: 
  Country: None (occurrence: None)
  Receive Date: 20111018
  Receipt Date: 20111011
  Transmission Date: 20120403
  Serious: Yes (Hospitalization, Other)
  Sender: FDA-Public Use
  Company Number: 2009-193180-NL

PATIENT
  Age: 37 Year
  Sex: Female
  Weight: 94.8925 kg

DRUGS (3)
  1. NUVARING [Suspect]
     Indication: MENORRHAGIA
     Dosage: ; Q3W;VAG
     Route: 067
     Dates: start: 20060101, end: 20090115
  2. VITAMIN B-12 [Concomitant]
  3. MULTI-VITAMINS [Concomitant]

REACTIONS (39)
  - PAIN IN EXTREMITY [None]
  - MUSCULOSKELETAL PAIN [None]
  - MUSCULOSKELETAL CHEST PAIN [None]
  - HEPATIC STEATOSIS [None]
  - MUSCLE SPASMS [None]
  - OROPHARYNGEAL PAIN [None]
  - HYPERTENSION [None]
  - REFUSAL OF TREATMENT BY PATIENT [None]
  - URINARY TRACT INFECTION [None]
  - JOINT SWELLING [None]
  - GRAVITATIONAL OEDEMA [None]
  - FOREIGN BODY [None]
  - OSTEOARTHRITIS [None]
  - AMENORRHOEA [None]
  - NASOPHARYNGITIS [None]
  - PULMONARY INFARCTION [None]
  - INTERNATIONAL NORMALISED RATIO INCREASED [None]
  - LEFT VENTRICULAR HYPERTROPHY [None]
  - INJECTION SITE PAIN [None]
  - PLEURISY [None]
  - BONE LESION [None]
  - THROMBOSIS [None]
  - HYPOAESTHESIA [None]
  - FIBRIN D DIMER INCREASED [None]
  - MITRAL VALVE INCOMPETENCE [None]
  - TRICUSPID VALVE INCOMPETENCE [None]
  - BODY TINEA [None]
  - THYROID NEOPLASM [None]
  - AUTOIMMUNE THYROIDITIS [None]
  - CARDIAC FLUTTER [None]
  - PARAESTHESIA [None]
  - COUGH [None]
  - DIZZINESS [None]
  - TYPE 2 DIABETES MELLITUS [None]
  - PULMONARY EMBOLISM [None]
  - MUSCULOSKELETAL DISCOMFORT [None]
  - LUNG NEOPLASM [None]
  - LIGAMENT SPRAIN [None]
  - CHEST PAIN [None]
